FAERS Safety Report 9419123 (Version 1)
Quarter: 2013Q3

REPORT INFORMATION
  Report Type: Spontaneous
  Country: BR (occurrence: BR)
  Receive Date: 20130725
  Receipt Date: 20130725
  Transmission Date: 20140515
  Serious: Yes (Hospitalization, Other)
  Sender: FDA-Public Use
  Company Number: BR-NOVOPROD-383390

PATIENT
  Age: 78 Year
  Sex: Female

DRUGS (2)
  1. NOVORAPID FLEXPEN [Suspect]
     Indication: DIABETES MELLITUS
     Dosage: 20 IU, QD (8IU IN THE MORNING; 6 IU AT LUNCH; 6 IU AT DINNER)
     Route: 058
     Dates: start: 2011
  2. NOVOLIN N PENFILL [Suspect]
     Indication: DIABETES MELLITUS
     Route: 058

REACTIONS (2)
  - Bronchopneumonia [Not Recovered/Not Resolved]
  - Incorrect product storage [Unknown]
